FAERS Safety Report 25539631 (Version 1)
Quarter: 2025Q3

REPORT INFORMATION
  Report Type: Spontaneous
  Country: EU (occurrence: EU)
  Receive Date: 20250710
  Receipt Date: 20250710
  Transmission Date: 20251020
  Serious: Yes (Other)
  Sender: GLAXOSMITHKLINE
  Company Number: EU-GSKCCFEMEA-Case-02395817_AE-99826

PATIENT
  Age: 14 Year
  Sex: Male

DRUGS (3)
  1. LAMICTAL [Suspect]
     Active Substance: LAMOTRIGINE
     Indication: Epilepsy
  2. LAMICTAL [Suspect]
     Active Substance: LAMOTRIGINE
     Dosage: 200 MG, QD
  3. MAGNESIUM [Concomitant]
     Active Substance: MAGNESIUM
     Indication: Ill-defined disorder

REACTIONS (4)
  - Arrhythmia [Unknown]
  - Muscle spasms [Unknown]
  - Headache [Unknown]
  - Tachycardia [Unknown]
